FAERS Safety Report 9789444 (Version 3)
Quarter: 2014Q1

REPORT INFORMATION
  Report Type: Spontaneous
  Country: US (occurrence: US)
  Receive Date: 20131231
  Receipt Date: 20140214
  Transmission Date: 20141002
  Serious: Yes (Hospitalization)
  Sender: FDA-Public Use
  Company Number: US-JNJFOC-20131211834

PATIENT
  Age: 41 Year
  Sex: Male
  Weight: 83.46 kg

DRUGS (7)
  1. TYLENOL UNSPECIFIED [Suspect]
     Route: 065
  2. TYLENOL UNSPECIFIED [Suspect]
     Indication: DEPRESSION
     Route: 065
  3. TRUVADA [Concomitant]
     Indication: HIV INFECTION
     Dosage: 2 YEARS
     Route: 065
     Dates: start: 20120125
  4. DARUNAVIR [Concomitant]
     Indication: HIV INFECTION
     Dosage: 2 YEARS
     Route: 065
     Dates: start: 20120125
  5. RITONAVIR [Concomitant]
     Indication: HIV INFECTION
     Dosage: 2 YEARS
     Route: 065
     Dates: start: 20120125
  6. METHAMPHETAMINE [Concomitant]
     Indication: DRUG ABUSE
     Dosage: 10 YEARS
     Route: 065
     Dates: start: 2003, end: 20131117
  7. ASA [Concomitant]
     Indication: CARDIAC DISORDER
     Dosage: 2.5 YEARS
     Route: 065
     Dates: start: 201106

REACTIONS (1)
  - Overdose [Unknown]
